FAERS Safety Report 16662681 (Version 1)
Quarter: 2019Q3

REPORT INFORMATION
  Report Type: Report from Study
  Country: US (occurrence: US)
  Receive Date: 20190802
  Receipt Date: 20190802
  Transmission Date: 20191004
  Serious: No
  Sender: FDA-Public Use
  Company Number: US-EXELIXIS-CABO-19019430

PATIENT
  Sex: Male

DRUGS (1)
  1. CABOMETYX [Suspect]
     Active Substance: CABOZANTINIB S-MALATE
     Indication: MALIGNANT NEOPLASM OF THYMUS
     Dosage: 40 MG, QD
     Dates: start: 20190226

REACTIONS (5)
  - Thyroid hormones increased [Not Recovered/Not Resolved]
  - Gout [Recovered/Resolved]
  - Off label use [Unknown]
  - Radiation dysphagia [Not Recovered/Not Resolved]
  - Nausea [Not Recovered/Not Resolved]
